FAERS Safety Report 16467299 (Version 1)
Quarter: 2019Q2

REPORT INFORMATION
  Report Type: Spontaneous
  Country: BG (occurrence: BG)
  Receive Date: 20190624
  Receipt Date: 20190624
  Transmission Date: 20190711
  Serious: Yes (Other)
  Sender: FDA-Public Use
  Company Number: BG-AMGEN-BGRSP2019096374

PATIENT
  Age: 44 Year
  Sex: Female

DRUGS (24)
  1. FOLINIC ACID [Concomitant]
     Active Substance: LEUCOVORIN
     Indication: METASTASES TO PLEURA
  2. 5 FU [Concomitant]
     Active Substance: FLUOROURACIL
     Indication: METASTASES TO LUNG
  3. OXALIPLATIN. [Concomitant]
     Active Substance: OXALIPLATIN
     Indication: METASTASES TO LIVER
  4. OXALIPLATIN. [Concomitant]
     Active Substance: OXALIPLATIN
     Indication: METASTASES TO LUNG
  5. OXALIPLATIN. [Concomitant]
     Active Substance: OXALIPLATIN
     Indication: METASTASES TO PLEURA
  6. VECTIBIX [Suspect]
     Active Substance: PANITUMUMAB
     Indication: METASTASES TO OVARY
     Dosage: UNK, (ADMINISTERED 12 COURSES)
     Route: 065
     Dates: start: 201710
  7. VECTIBIX [Suspect]
     Active Substance: PANITUMUMAB
     Indication: METASTASES TO LIVER
  8. VECTIBIX [Suspect]
     Active Substance: PANITUMUMAB
     Indication: METASTASES TO LUNG
  9. VECTIBIX [Suspect]
     Active Substance: PANITUMUMAB
     Indication: METASTASES TO PERITONEUM
  10. FOLINIC ACID [Concomitant]
     Active Substance: LEUCOVORIN
     Indication: METASTASES TO LUNG
  11. FOLINIC ACID [Concomitant]
     Active Substance: LEUCOVORIN
     Indication: METASTASES TO PERITONEUM
  12. 5 FU [Concomitant]
     Active Substance: FLUOROURACIL
     Indication: METASTASES TO LIVER
  13. FOLINIC ACID [Concomitant]
     Active Substance: LEUCOVORIN
     Indication: COLORECTAL CANCER METASTATIC
     Dosage: UNK, (A TOTAL OF 8 COURSES)
     Dates: start: 2015
  14. FOLINIC ACID [Concomitant]
     Active Substance: LEUCOVORIN
     Indication: METASTASES TO OVARY
  15. OXALIPLATIN. [Concomitant]
     Active Substance: OXALIPLATIN
     Indication: COLORECTAL CANCER METASTATIC
     Dosage: UNK (8 COURSES)
     Dates: start: 2015
  16. FOLINIC ACID [Concomitant]
     Active Substance: LEUCOVORIN
     Indication: METASTASES TO LIVER
  17. 5 FU [Concomitant]
     Active Substance: FLUOROURACIL
     Indication: METASTASES TO PERITONEUM
  18. 5 FU [Concomitant]
     Active Substance: FLUOROURACIL
     Indication: METASTASES TO OVARY
  19. OXALIPLATIN. [Concomitant]
     Active Substance: OXALIPLATIN
     Indication: METASTASES TO PERITONEUM
  20. OXALIPLATIN. [Concomitant]
     Active Substance: OXALIPLATIN
     Indication: METASTASES TO OVARY
  21. VECTIBIX [Suspect]
     Active Substance: PANITUMUMAB
     Indication: COLORECTAL CANCER METASTATIC
     Dosage: UNK, (A TOTAL OF 8 COURSES)
     Route: 065
     Dates: start: 2015, end: 201601
  22. VECTIBIX [Suspect]
     Active Substance: PANITUMUMAB
     Indication: METASTASES TO PLEURA
  23. 5 FU [Concomitant]
     Active Substance: FLUOROURACIL
     Indication: COLORECTAL CANCER METASTATIC
     Dosage: UNK (8 COURSES)
     Dates: start: 2015
  24. 5 FU [Concomitant]
     Active Substance: FLUOROURACIL
     Indication: METASTASES TO PLEURA

REACTIONS (2)
  - Metastases to lymph nodes [Unknown]
  - Metastases to liver [Unknown]

NARRATIVE: CASE EVENT DATE: 201703
